FAERS Safety Report 25479446 (Version 4)
Quarter: 2025Q3

REPORT INFORMATION
  Report Type: Spontaneous
  Country: EU (occurrence: EU)
  Receive Date: 20250625
  Receipt Date: 20250710
  Transmission Date: 20251021
  Serious: Yes (Other)
  Sender: SANDOZ
  Company Number: EU-NOVPHSZ-PHHY2018ES009725

PATIENT
  Age: 23 Year
  Sex: Male

DRUGS (34)
  1. BUSULFAN [Suspect]
     Active Substance: BUSULFAN
     Indication: Acute lymphocytic leukaemia recurrent
     Route: 065
     Dates: start: 20140928
  2. BUSULFAN [Suspect]
     Active Substance: BUSULFAN
     Route: 065
     Dates: start: 20140928
  3. CYTARABINE [Suspect]
     Active Substance: CYTARABINE
     Indication: Acute lymphocytic leukaemia recurrent
     Route: 065
     Dates: start: 20140415
  4. CYTARABINE [Suspect]
     Active Substance: CYTARABINE
     Route: 065
     Dates: start: 2014
  5. CYTARABINE [Suspect]
     Active Substance: CYTARABINE
     Route: 065
     Dates: start: 20140415
  6. CYCLOPHOSPHAMIDE [Suspect]
     Active Substance: CYCLOPHOSPHAMIDE
     Indication: Acute lymphocytic leukaemia recurrent
     Route: 065
  7. CYCLOPHOSPHAMIDE [Suspect]
     Active Substance: CYCLOPHOSPHAMIDE
     Route: 065
     Dates: start: 20140415
  8. DECADRON (DEXAMETHASONE SODIUM PHOSPHATE) [Suspect]
     Active Substance: DEXAMETHASONE SODIUM PHOSPHATE
     Indication: Acute lymphocytic leukaemia recurrent
     Route: 065
     Dates: start: 20140415
  9. DECADRON (DEXAMETHASONE SODIUM PHOSPHATE) [Suspect]
     Active Substance: DEXAMETHASONE SODIUM PHOSPHATE
     Route: 065
     Dates: start: 2014
  10. DECADRON (DEXAMETHASONE SODIUM PHOSPHATE) [Suspect]
     Active Substance: DEXAMETHASONE SODIUM PHOSPHATE
     Route: 065
  11. DOXORUBICIN [Suspect]
     Active Substance: DOXORUBICIN
     Indication: Acute lymphocytic leukaemia recurrent
     Route: 065
     Dates: start: 20140415
  12. DOXORUBICIN [Suspect]
     Active Substance: DOXORUBICIN
     Route: 065
     Dates: start: 2014
  13. DOXORUBICIN [Suspect]
     Active Substance: DOXORUBICIN
     Route: 065
     Dates: start: 20140415
  14. FLUDARABINE [Suspect]
     Active Substance: FLUDARABINE PHOSPHATE
     Indication: Acute lymphocytic leukaemia recurrent
     Route: 065
     Dates: start: 20140928
  15. FLUDARABINE [Suspect]
     Active Substance: FLUDARABINE PHOSPHATE
     Route: 065
     Dates: start: 20140928
  16. GENOXAL [Suspect]
     Active Substance: CYCLOPHOSPHAMIDE
     Indication: Acute lymphocytic leukaemia recurrent
     Route: 065
     Dates: start: 20140415
  17. GENOXAL [Suspect]
     Active Substance: CYCLOPHOSPHAMIDE
     Route: 065
     Dates: start: 2014
  18. ICLUSIG [Suspect]
     Active Substance: PONATINIB HYDROCHLORIDE
     Indication: Acute lymphocytic leukaemia recurrent
     Dosage: 45 MG, QD REGIMEN #1, FIRST CYCLE
     Route: 048
     Dates: start: 20140415
  19. METHOTREXATE SODIUM [Suspect]
     Active Substance: METHOTREXATE SODIUM
     Indication: Acute lymphocytic leukaemia recurrent
     Route: 065
     Dates: start: 20140415
  20. METHOTREXATE SODIUM [Suspect]
     Active Substance: METHOTREXATE SODIUM
     Route: 065
     Dates: start: 2014
  21. METHOTREXATE SODIUM [Suspect]
     Active Substance: METHOTREXATE SODIUM
     Route: 065
     Dates: start: 20140415
  22. PONATINIB [Suspect]
     Active Substance: PONATINIB
     Dosage: REGIMEN #1, FIRST CYCLE
     Route: 065
     Dates: start: 20140415
  23. PONATINIB [Suspect]
     Active Substance: PONATINIB
     Indication: Product used for unknown indication
     Route: 065
     Dates: start: 2014
  24. PONATINIB [Suspect]
     Active Substance: PONATINIB
     Route: 065
     Dates: start: 2014
  25. PONATINIB [Suspect]
     Active Substance: PONATINIB
     Route: 065
     Dates: start: 2024
  26. RITUXIMAB [Suspect]
     Active Substance: RITUXIMAB
     Indication: Product used for unknown indication
     Route: 065
  27. RITUXIMAB [Suspect]
     Active Substance: RITUXIMAB
     Route: 065
  28. THIOTEPA [Suspect]
     Active Substance: THIOTEPA
     Indication: Acute lymphocytic leukaemia recurrent
     Dosage: 45 MG, QD (4 CYCLES)
     Route: 048
     Dates: start: 20140928
  29. THIOTEPA [Suspect]
     Active Substance: THIOTEPA
     Route: 048
     Dates: start: 20140928
  30. THIOTEPA [Suspect]
     Active Substance: THIOTEPA
     Route: 065
     Dates: start: 20140928
  31. THIOTEPA [Suspect]
     Active Substance: THIOTEPA
     Route: 065
     Dates: start: 20140928
  32. VINCRISTINE SULFATE [Suspect]
     Active Substance: VINCRISTINE SULFATE
     Indication: Acute lymphocytic leukaemia recurrent
     Route: 065
     Dates: start: 20140415
  33. VINCRISTINE SULFATE [Suspect]
     Active Substance: VINCRISTINE SULFATE
     Route: 065
     Dates: start: 2014
  34. VINCRISTINE SULFATE [Suspect]
     Active Substance: VINCRISTINE SULFATE
     Route: 065
     Dates: start: 20140415

REACTIONS (7)
  - Neoplasm recurrence [Unknown]
  - Post transplant lymphoproliferative disorder [Recovered/Resolved]
  - Epstein-Barr virus infection [Recovered/Resolved]
  - Cytomegalovirus infection [Unknown]
  - Autoimmune lymphoproliferative syndrome [Unknown]
  - Acute lymphocytic leukaemia recurrent [Unknown]
  - Viral haemorrhagic cystitis [Unknown]

NARRATIVE: CASE EVENT DATE: 20141015
